FAERS Safety Report 6186720-X (Version None)
Quarter: 2009Q2

REPORT INFORMATION
  Report Type: 
  Country: None (occurrence: None)
  Receive Date: 20090508
  Receipt Date: 20090428
  Transmission Date: 20091009
  Serious: Yes (Other)
  Sender: FDA-Public Use
  Company Number: CC09-100

PATIENT
  Age: 70 Year
  Sex: Male

DRUGS (4)
  1. ALBUTEROL [Suspect]
     Indication: EMPHYSEMA
     Dosage: 2 ACTUATIONS AS NEEDED
  2. ADVAIR HFA [Concomitant]
  3. SPRIVIA [Concomitant]
  4. OXYGEN TANK [Concomitant]

REACTIONS (3)
  - CHEST DISCOMFORT [None]
  - DYSPNOEA [None]
  - PRODUCT SUBSTITUTION ISSUE [None]
